FAERS Safety Report 25048633 (Version 1)
Quarter: 2025Q1

REPORT INFORMATION
  Report Type: Spontaneous
  Country: CO (occurrence: CO)
  Receive Date: 20250307
  Receipt Date: 20250307
  Transmission Date: 20250408
  Serious: Yes (Hospitalization, Other)
  Sender: CELLTRION
  Company Number: CO-CELLTRION INC.-2024CO019356

PATIENT

DRUGS (5)
  1. INFLIXIMAB [Suspect]
     Active Substance: INFLIXIMAB
     Indication: Rheumatoid arthritis
     Route: 058
     Dates: start: 20230510
  2. INFLIXIMAB [Suspect]
     Active Substance: INFLIXIMAB
     Route: 058
     Dates: start: 20231005
  3. INFLIXIMAB [Suspect]
     Active Substance: INFLIXIMAB
     Route: 058
     Dates: start: 20240111
  4. INFLIXIMAB [Suspect]
     Active Substance: INFLIXIMAB
     Route: 058
     Dates: start: 20240823
  5. INFLIXIMAB [Suspect]
     Active Substance: INFLIXIMAB
     Route: 058
     Dates: start: 20241130

REACTIONS (10)
  - Arthritis [Recovered/Resolved]
  - Arthralgia [Recovered/Resolved]
  - Hypertension [Recovered/Resolved]
  - Kidney infection [Recovered/Resolved]
  - Headache [Recovered/Resolved]
  - Fatigue [Recovered/Resolved]
  - Asthenia [Not Recovered/Not Resolved]
  - Hyperhidrosis [Not Recovered/Not Resolved]
  - Intentional product use issue [Recovered/Resolved]
  - Intentional dose omission [Recovered/Resolved]

NARRATIVE: CASE EVENT DATE: 20240808
